FAERS Safety Report 5910840-5 (Version None)
Quarter: 2008Q4

REPORT INFORMATION
  Report Type: 
  Country: None (occurrence: None)
  Receive Date: 20081007
  Receipt Date: 20080924
  Transmission Date: 20090506
  Serious: Yes (Hospitalization, Other)
  Sender: FDA-Public Use
  Company Number: PHHY2008JP22562

PATIENT

DRUGS (4)
  1. CYCLOSPORINE [Suspect]
     Route: 064
  2. MIZORIBINE [Concomitant]
     Route: 064
  3. METHYLPREDNISOLONE [Concomitant]
     Route: 064
  4. AZATHIOPRINE [Concomitant]
     Route: 064

REACTIONS (4)
  - DRUG EXPOSURE DURING PREGNANCY [None]
  - GASTROINTESTINAL SURGERY [None]
  - SMALL FOR DATES BABY [None]
  - SMALL INTESTINAL OBSTRUCTION [None]
